FAERS Safety Report 4713831-5 (Version None)
Quarter: 2005Q3

REPORT INFORMATION
  Report Type: 
  Country: None (occurrence: None)
  Receive Date: 20050713
  Receipt Date: 20050628
  Transmission Date: 20060218
  Serious: Yes (Hospitalization)
  Sender: FDA-Public Use
  Company Number: USA050394196

PATIENT
  Age: 76 Year
  Sex: Female

DRUGS (3)
  1. FORTEO [Suspect]
     Indication: OSTEOPOROSIS
     Dosage: 30 UG/1 DAY
     Dates: start: 20050201
  2. LIDODERM (LIDOCAINE   /00033401/) [Concomitant]
  3. DILAUDID [Concomitant]

REACTIONS (6)
  - ABDOMINAL PAIN UPPER [None]
  - PAIN [None]
  - PHARMACEUTICAL PRODUCT COMPLAINT [None]
  - SPINAL FRACTURE [None]
  - STOMACH DISCOMFORT [None]
  - UPPER LIMB FRACTURE [None]
